FAERS Safety Report 10554229 (Version 1)
Quarter: 2014Q4

REPORT INFORMATION
  Report Type: Spontaneous
  Country: GB (occurrence: GB)
  Receive Date: 20141030
  Receipt Date: 20141030
  Transmission Date: 20150529
  Serious: Yes (Disabling, Other)
  Sender: FDA-Public Use
  Company Number: GB-009507513-1410GBR014552

PATIENT
  Age: 60 Year
  Sex: Male

DRUGS (2)
  1. SIMVASTATIN. [Suspect]
     Active Substance: SIMVASTATIN
     Indication: BLOOD CHOLESTEROL INCREASED
     Dosage: 20 UNITS NOT PROVIDED, UNK
     Route: 048
     Dates: start: 200610
  2. SIMVASTATIN. [Interacting]
     Active Substance: SIMVASTATIN
     Indication: BLOOD CHOLESTEROL INCREASED

REACTIONS (6)
  - Abdominal distension [Unknown]
  - Frustration [Unknown]
  - Flatulence [Unknown]
  - Fatigue [Unknown]
  - Impaired work ability [Unknown]
  - Drug interaction [Unknown]
